FAERS Safety Report 6590478-X (Version None)
Quarter: 2010Q1

REPORT INFORMATION
  Report Type: 
  Country: None (occurrence: None)
  Receive Date: 20100219
  Receipt Date: 20100211
  Transmission Date: 20100710
  Serious: Yes (Death, Hospitalization)
  Sender: FDA-Public Use
  Company Number: GB-ROCHE-685229

PATIENT
  Age: 64 Year
  Sex: Male

DRUGS (2)
  1. PEGASYS [Suspect]
     Indication: HEPATITIS C
     Dosage: DOSAGE REPORTED AS 180 (NO UNITS PROVIDED)
     Route: 065
     Dates: start: 20091015, end: 20100122
  2. COPEGUS [Suspect]
     Indication: HEPATITIS C
     Dosage: DOSAGE REPORTED AS 800 (NO UNITS PROVIDED)
     Route: 065
     Dates: start: 20091015, end: 20100122

REACTIONS (3)
  - PLATELET COUNT DECREASED [None]
  - RENAL FAILURE [None]
  - SEPSIS [None]
